FAERS Safety Report 6998355-7 (Version None)
Quarter: 2010Q3

REPORT INFORMATION
  Report Type: 
  Country: None (occurrence: None)
  Receive Date: 20100920
  Receipt Date: 20100915
  Transmission Date: 20110219
  Serious: Yes (Death, Life-Threatening, Other)
  Sender: FDA-Public Use
  Company Number: IT-GENZYME-CLOF-1000754

PATIENT
  Sex: Female
  Weight: 54 kg

DRUGS (10)
  1. BLINDED CLOFARABINE [Suspect]
     Indication: ACUTE MYELOID LEUKAEMIA
     Dates: start: 20091124, end: 20091127
  2. BLINDED PLACEBO [Suspect]
     Indication: ACUTE MYELOID LEUKAEMIA
     Dates: start: 20091124, end: 20091127
  3. ARA-C [Suspect]
     Indication: ACUTE MYELOID LEUKAEMIA
     Dosage: 1700 MG, QDX5
     Route: 042
     Dates: start: 20090923, end: 20090927
  4. ARA-C [Suspect]
     Dosage: 1540 MG, UNK
     Route: 042
     Dates: start: 20091124, end: 20091127
  5. NISTATIN [Concomitant]
     Indication: PROPHYLAXIS
     Dosage: UNK UNK, UNK
     Dates: start: 20090813
  6. LORAZEPAM [Concomitant]
     Indication: PROPHYLAXIS
     Dosage: 1 OTHER, UNK
     Dates: start: 20090813
  7. SUCRALFATE [Concomitant]
     Indication: PROPHYLAXIS
     Dosage: 1 OTHER, UNK
     Dates: start: 20081021
  8. RABEPRAZOLE SODIUM [Concomitant]
     Indication: PROPHYLAXIS
     Dosage: UNK UNK, UNK
     Dates: start: 20091020, end: 20091108
  9. POTASSIUM CHLORIDE [Concomitant]
     Indication: PROPHYLAXIS
     Dosage: UNK
     Dates: start: 20091020, end: 20091108
  10. CALCIUM [Concomitant]
     Indication: ELECTROLYTE SUBSTITUTION THERAPY
     Route: 048

REACTIONS (3)
  - INCORRECT DOSE ADMINISTERED [None]
  - LEUKOPENIA [None]
  - THROMBOCYTOPENIA [None]
